FAERS Safety Report 5874566-9 (Version None)
Quarter: 2008Q3

REPORT INFORMATION
  Report Type: 
  Country: None (occurrence: None)
  Receive Date: 20080909
  Receipt Date: 20080904
  Transmission Date: 20090109
  Serious: Yes (Death)
  Sender: FDA-Public Use
  Company Number: PHBS2008NL05610

PATIENT
  Age: 55 Year
  Sex: Female

DRUGS (2)
  1. CYCLOSPORINE [Suspect]
     Indication: BONE MARROW TRANSPLANT
  2. RITUXIMAB [Suspect]
     Indication: BONE MARROW TRANSPLANT

REACTIONS (4)
  - CONFUSIONAL STATE [None]
  - DYSPHAGIA [None]
  - MUSCLE SPASTICITY [None]
  - PROGRESSIVE MULTIFOCAL LEUKOENCEPHALOPATHY [None]
